FAERS Safety Report 5618287-6 (Version None)
Quarter: 2008Q1

REPORT INFORMATION
  Report Type: 
  Country: None (occurrence: None)
  Receive Date: 20080207
  Receipt Date: 20080129
  Transmission Date: 20080703
  Serious: Yes (Death, Other)
  Sender: FDA-Public Use
  Company Number: US-BAYER-200812445NA

PATIENT
  Sex: Male

DRUGS (4)
  1. MAGNEVIST [Suspect]
     Route: 042
     Dates: start: 20050609, end: 20050609
  2. MAGNEVIST [Suspect]
     Route: 042
     Dates: start: 20050610, end: 20050610
  3. MAGNEVIST [Suspect]
     Route: 042
     Dates: start: 20050909, end: 20050909
  4. MAGNEVIST [Suspect]
     Route: 042
     Dates: start: 20050914, end: 20050914

REACTIONS (3)
  - FIBROSIS [None]
  - INJURY [None]
  - NEPHROGENIC SYSTEMIC FIBROSIS [None]
